FAERS Safety Report 22159528 (Version 1)
Quarter: 2023Q1

REPORT INFORMATION
  Report Type: Spontaneous
  Country: US (occurrence: None)
  Receive Date: 20230331
  Receipt Date: 20230331
  Transmission Date: 20230418
  Serious: Yes (Other)
  Sender: FDA-Public Use
  Company Number: US-MICRO LABS LIMITED-ML2023-01750

PATIENT
  Age: 53 Year
  Sex: Male

DRUGS (4)
  1. APIXABAN [Suspect]
     Active Substance: APIXABAN
     Indication: Atrial fibrillation
  2. APIXABAN [Suspect]
     Active Substance: APIXABAN
     Indication: Atrial flutter
  3. METOPROLOL [Concomitant]
     Active Substance: METOPROLOL
     Indication: Product used for unknown indication
     Dosage: DISCONTINUED FOR RASH SUSPICION
  4. METOPROLOL [Concomitant]
     Active Substance: METOPROLOL
     Dosage: RUSUMED

REACTIONS (2)
  - Skin necrosis [Recovering/Resolving]
  - Drug eruption [Recovering/Resolving]
